FAERS Safety Report 17802498 (Version 1)
Quarter: 2020Q2

REPORT INFORMATION
  Report Type: Spontaneous
  Country: US (occurrence: US)
  Receive Date: 20200518
  Receipt Date: 20200518
  Transmission Date: 20200714
  Serious: No
  Sender: FDA-Public Use
  Company Number: None

PATIENT
  Sex: Female

DRUGS (1)
  1. RASUVO [Suspect]
     Active Substance: METHOTREXATE SODIUM
     Indication: MIGRAINE
     Route: 058
     Dates: start: 202004

REACTIONS (4)
  - Abdominal discomfort [None]
  - Decreased appetite [None]
  - Nausea [None]
  - Weight decreased [None]
